FAERS Safety Report 8554993 (Version 2)
Quarter: 2013Q2

REPORT INFORMATION
  Report Type: Spontaneous
  Country: NL (occurrence: None)
  Receive Date: 20120503
  Receipt Date: 20130621
  Transmission Date: 20140414
  Serious: Yes (Hospitalization)
  Sender: FDA-Public Use
  Company Number: NL-024299

PATIENT
  Age: 55 Year
  Sex: Male

DRUGS (8)
  1. CHLORAMBUCIL [Suspect]
     Indication: PRODUCT USED FOR UNKNOWN INDICATION
     Dosage: 16 MG, UNSPECIFIED INTERVAL
     Dates: start: 20110530, end: 20110630
  2. RITUXIMAB [Suspect]
     Indication: PRODUCT USED FOR UNKNOWN INDICATION
     Dosage: 740 MG
     Dates: start: 20110530, end: 20110530
  3. LOMUSTINE [Suspect]
     Indication: PRODUCT USED FOR UNKNOWN INDICATION
     Dosage: 160 MG
     Dates: start: 20110530, end: 20110530
  4. ETOPOSIDE [Suspect]
     Indication: PRODUCT USED FOR UNKNOWN INDICATION
     Dosage: 200 MG
     Dates: start: 20110530, end: 20110630
  5. PREDNISOLONE [Concomitant]
  6. OXYCODONE HYDROCHLORIDE [Concomitant]
  7. FLUCONAZOLE [Concomitant]
  8. BISACODYL [Concomitant]

REACTIONS (1)
  - PNEUMONIA KLEBSIELLA [None]
